FAERS Safety Report 8792992 (Version 2)
Quarter: 2012Q4

REPORT INFORMATION
  Report Type: 
  Country: DE (occurrence: DE)
  Receive Date: 20120918
  Receipt Date: 20121022
  Transmission Date: 20130627
  Serious: Yes (Life-Threatening)
  Sender: FDA-Public Use
  Company Number: DE-B.I. PHARMACEUTICALS,INC./RIDGEFIELD-2012-DE-02174DE

PATIENT
  Age: 79 Year
  Sex: Male
  Weight: 74 kg

DRUGS (15)
  1. PRADAXA [Suspect]
     Indication: ATRIAL FIBRILLATION
     Dosage: 300 mg
     Dates: start: 20111130
  2. PRADAXA [Suspect]
     Indication: CEREBROVASCULAR ACCIDENT
  3. TORASEMID 1 A PHARMA [Concomitant]
     Dosage: 5 mg
  4. METOPROLOL [Concomitant]
  5. RAMIPRIL [Concomitant]
  6. ALDACTONE 25 UTA [Concomitant]
     Dosage: 1 anz
  7. BETA ACETYL ACIS [Concomitant]
     Dosage: 0.2 mg
  8. ATACAND [Concomitant]
     Dosage: 16 mg
  9. PANTOPRAZOL [Concomitant]
     Dosage: 40 mg
  10. SIMVABETA [Concomitant]
     Dosage: 20 mg
  11. SYMBICORT TUR 160/4.5UG 60E [Concomitant]
     Dosage: formulation: IHP
  12. VEROSPIRON T [Concomitant]
     Dosage: 25 mg
  13. VITAMIN B12 RATIOPHARM N [Concomitant]
     Dosage: 0.0357 anz
  14. XELEVIA [Concomitant]
     Dosage: formulation: FTA
     Route: 058
  15. METOBETA 100 RETARD [Concomitant]

REACTIONS (1)
  - Myocardial infarction [Recovered/Resolved with Sequelae]
